FAERS Safety Report 6190845-2 (Version None)
Quarter: 2009Q2

REPORT INFORMATION
  Report Type: 
  Country: None (occurrence: None)
  Receive Date: 20090514
  Receipt Date: 20090504
  Transmission Date: 20091009
  Serious: Yes (Hospitalization, Other)
  Sender: FDA-Public Use
  Company Number: FR-BAXTER-2009BH004857

PATIENT
  Age: 66 Year
  Sex: Female
  Weight: 58 kg

DRUGS (5)
  1. ENDOXAN BAXTER [Suspect]
     Indication: BREAST CANCER
     Route: 042
     Dates: start: 20081215, end: 20090126
  2. IXABEPILONE [Suspect]
     Indication: BREAST CANCER
     Route: 042
     Dates: start: 20090216, end: 20090216
  3. EPIRUBICIN [Suspect]
     Indication: BREAST CANCER
     Route: 042
     Dates: start: 20081215, end: 20090126
  4. FLUOROURACIL [Suspect]
     Indication: BREAST CANCER
     Route: 042
     Dates: start: 20081215, end: 20090126
  5. DEXTROPROPOXYPHENE [Concomitant]
     Indication: PAIN
     Route: 048
     Dates: start: 20090221, end: 20090301

REACTIONS (2)
  - MUSCULOSKELETAL PAIN [None]
  - NEUROPATHY PERIPHERAL [None]
